FAERS Safety Report 9914087 (Version 1)
Quarter: 2014Q1

REPORT INFORMATION
  Report Type: Spontaneous
  Country: US (occurrence: US)
  Receive Date: 20140220
  Receipt Date: 20140220
  Transmission Date: 20141002
  Serious: No
  Sender: FDA-Public Use
  Company Number: US-MYLANLABS-2013S1019905

PATIENT
  Age: 52 Year
  Sex: Female
  Weight: 49.44 kg

DRUGS (2)
  1. ALPRAZOLAM TABLETS, USP [Suspect]
     Indication: ANXIETY
     Route: 048
     Dates: start: 201307, end: 201307
  2. LEVOTHYROXINE [Concomitant]
     Indication: THYROIDECTOMY
     Dates: start: 2002

REACTIONS (4)
  - Chills [Recovered/Resolved]
  - Rash [Recovered/Resolved]
  - Diarrhoea [Recovered/Resolved]
  - Reaction to drug excipients [Recovered/Resolved]
